FAERS Safety Report 15111824 (Version 1)
Quarter: 2018Q3

REPORT INFORMATION
  Report Type: Spontaneous
  Country: KR (occurrence: KR)
  Receive Date: 20180705
  Receipt Date: 20180705
  Transmission Date: 20181010
  Serious: Yes (Other)
  Sender: FDA-Public Use
  Company Number: KR-JNJFOC-20180700195

PATIENT

DRUGS (1)
  1. INFLIXIMAB, RECOMBINANT [Suspect]
     Active Substance: INFLIXIMAB
     Indication: AXIAL SPONDYLOARTHRITIS
     Route: 042

REACTIONS (1)
  - Lupus-like syndrome [Unknown]
